FAERS Safety Report 5701772-6 (Version None)
Quarter: 2008Q2

REPORT INFORMATION
  Report Type: 
  Country: None (occurrence: None)
  Receive Date: 20080410
  Receipt Date: 20080410
  Transmission Date: 20081010
  Serious: Yes (Hospitalization, Other)
  Sender: FDA-Public Use
  Company Number: None

PATIENT
  Sex: Male
  Weight: 79.3795 kg

DRUGS (2)
  1. LEVAQUIN [Suspect]
     Indication: DIVERTICULITIS
     Dosage: 400MG 1 A DAY/10DAYS MOUTH
     Route: 048
     Dates: start: 20080314, end: 20080324
  2. LEVAQUIN [Suspect]
     Indication: DIVERTICULITIS
     Dosage: 250 MG ONCE IV
     Route: 042

REACTIONS (9)
  - AMNESIA [None]
  - ANXIETY [None]
  - ARTHRALGIA [None]
  - DYSAESTHESIA [None]
  - FEELING ABNORMAL [None]
  - INSOMNIA [None]
  - PANIC ATTACK [None]
  - TEMPERATURE INTOLERANCE [None]
  - TREMOR [None]
